FAERS Safety Report 9384691 (Version 1)
Quarter: 2013Q3

REPORT INFORMATION
  Report Type: Spontaneous
  Country: US (occurrence: US)
  Receive Date: 20130705
  Receipt Date: 20130705
  Transmission Date: 20140515
  Serious: No
  Sender: FDA-Public Use
  Company Number: US-009507513-1306USA013023

PATIENT
  Sex: Female

DRUGS (3)
  1. PREDNISONE [Suspect]
     Indication: ECZEMA
     Dosage: ORAL PREDNISONE
     Route: 048
     Dates: start: 201306
  2. FOSAMAX [Suspect]
     Dosage: ONCE A WEEK
     Route: 048
     Dates: start: 20130531
  3. PREDNISONE [Suspect]
     Dosage: A SHOT OF PREDNISONE
     Dates: start: 20130620

REACTIONS (1)
  - Drug ineffective [Unknown]
